FAERS Safety Report 9226906 (Version 2)
Quarter: 2013Q2

REPORT INFORMATION
  Report Type: Report from Study
  Country: US (occurrence: US)
  Receive Date: 20130412
  Receipt Date: 20130626
  Transmission Date: 20140414
  Serious: Yes (Hospitalization)
  Sender: FDA-Public Use
  Company Number: US-JNJFOC-20130404275

PATIENT
  Age: 54 Year
  Sex: Female
  Weight: 66.8 kg

DRUGS (7)
  1. APAP/DIPHENHYDRAMINE [Suspect]
     Indication: PRODUCT USED FOR UNKNOWN INDICATION
     Route: 048
     Dates: start: 20130406
  2. TRAMADOL [Suspect]
     Indication: PRODUCT USED FOR UNKNOWN INDICATION
     Route: 048
     Dates: start: 20130406
  3. ETHANOL [Suspect]
     Indication: PRODUCT USED FOR UNKNOWN INDICATION
     Route: 048
     Dates: start: 20130406
  4. AMBIEN [Concomitant]
     Route: 065
  5. CELEXA [Concomitant]
     Route: 065
  6. RISPERADOL [Concomitant]
     Route: 065
  7. LITHIUM [Concomitant]
     Route: 065

REACTIONS (4)
  - Overdose [Recovered/Resolved]
  - Toxicity to various agents [Recovered/Resolved]
  - Somnolence [Recovered/Resolved]
  - Self injurious behaviour [None]
